FAERS Safety Report 16838335 (Version 1)
Quarter: 2019Q3

REPORT INFORMATION
  Report Type: Spontaneous
  Country: GB (occurrence: GB)
  Receive Date: 20190923
  Receipt Date: 20190923
  Transmission Date: 20191005
  Serious: Yes (Other)
  Sender: FDA-Public Use
  Company Number: GB-TEVA-2019-GB-1111022

PATIENT
  Age: 55 Year
  Sex: Male
  Weight: 70 kg

DRUGS (15)
  1. FINASTERIDE. [Concomitant]
     Active Substance: FINASTERIDE
  2. OMEPRAZOLE. [Suspect]
     Active Substance: OMEPRAZOLE
     Indication: GASTROOESOPHAGEAL REFLUX DISEASE
     Dosage: 40 MG PER DAY
     Route: 048
     Dates: end: 201812
  3. ALGINATES [Concomitant]
  4. PARACETAMOL [Concomitant]
     Active Substance: ACETAMINOPHEN
  5. APIXABAN [Concomitant]
     Active Substance: APIXABAN
  6. METFORMIN [Concomitant]
     Active Substance: METFORMIN HYDROCHLORIDE
  7. PIOGLITAZONE. [Concomitant]
     Active Substance: PIOGLITAZONE
     Dosage: 30 MG
  8. CLOZAPINE. [Suspect]
     Active Substance: CLOZAPINE
     Indication: SCHIZOPHRENIA
     Dosage: 75MG MORNING + 125MG NIGHT, 400 MICROGRAM PER DAY
     Route: 048
  9. BISOPROLOL [Concomitant]
     Active Substance: BISOPROLOL
  10. FERROUS FUMARATE [Concomitant]
     Active Substance: FERROUS FUMARATE
  11. FYBOGEL [Concomitant]
     Active Substance: PLANTAGO OVATA SEED
  12. ATROPINE. [Concomitant]
     Active Substance: ATROPINE
     Dosage: NIGHT.1 GTT PER DAY
  13. EXENATIDE. [Concomitant]
     Active Substance: EXENATIDE
  14. OMEPRAZOLE. [Interacting]
     Active Substance: OMEPRAZOLE
     Indication: GASTROOESOPHAGEAL REFLUX DISEASE
     Dosage: 80 MONTHS PER DAY
     Route: 048
     Dates: start: 201812, end: 201908
  15. QVAR [Concomitant]
     Active Substance: BECLOMETHASONE DIPROPIONATE

REACTIONS (2)
  - Drug interaction [Not Recovered/Not Resolved]
  - Antipsychotic drug level decreased [Unknown]

NARRATIVE: CASE EVENT DATE: 201812
